FAERS Safety Report 12478657 (Version 1)
Quarter: 2016Q2

REPORT INFORMATION
  Report Type: Spontaneous
  Country: IR (occurrence: IR)
  Receive Date: 20160619
  Receipt Date: 20160619
  Transmission Date: 20160815
  Serious: Yes (Other)
  Sender: FDA-Public Use
  Company Number: IR-009507513-1606IRN007286

PATIENT
  Age: 55 Year
  Sex: Male

DRUGS (2)
  1. TEMODAL [Suspect]
     Active Substance: TEMOZOLOMIDE
     Indication: GLIOBLASTOMA MULTIFORME
     Dosage: CONCOMITANT PHASE: 150 MG, UNK
     Route: 048
  2. TEMODAL [Suspect]
     Active Substance: TEMOZOLOMIDE
     Dosage: ADJUVANT PHASE: 315 MG, UNK
     Route: 048

REACTIONS (2)
  - Blindness [Unknown]
  - Product use issue [Unknown]
